FAERS Safety Report 18931627 (Version 1)
Quarter: 2021Q1

REPORT INFORMATION
  Report Type: Report from Study
  Country: KR (occurrence: KR)
  Receive Date: 20210224
  Receipt Date: 20210224
  Transmission Date: 20210420
  Serious: Yes (Hospitalization)
  Sender: FDA-Public Use
  Company Number: KR-TEVA-572524ISR

PATIENT
  Age: 34 Year
  Sex: Female
  Weight: 63.1 kg

DRUGS (28)
  1. CARBOPLATIN (BLINDED) [Suspect]
     Active Substance: CARBOPLATIN
     Indication: TRIPLE NEGATIVE BREAST CANCER
     Dosage: AUC 6; DAY 1 OF FOUR 21?DAY CYCLES IN SEGMENT 1
     Route: 042
     Dates: start: 20141210, end: 20141230
  2. CYCLOPHOSPHAMIDE. [Suspect]
     Active Substance: CYCLOPHOSPHAMIDE
     Indication: TRIPLE NEGATIVE BREAST CANCER
     Dosage: DAY 1 OF FOUR 21?DAY CYCLES IN SEGMENT 2 (600 MG/M2)
     Route: 042
     Dates: start: 20150309, end: 20150428
  3. FAMOTIDINE. [Concomitant]
     Active Substance: FAMOTIDINE
     Indication: HYPERTENSION
     Dosage: 20 MILLIGRAM DAILY;
     Route: 042
     Dates: start: 20150309
  4. ACETAMINOPHEN. [Concomitant]
     Active Substance: ACETAMINOPHEN
     Indication: MYALGIA
     Dosage: 650 MILLIGRAM DAILY;
     Route: 048
     Dates: start: 20141210
  5. HEXAMEDIN [Concomitant]
     Indication: STOMATITIS
     Dosage: 100 ML DAILY;
     Route: 061
     Dates: start: 20141224
  6. PANTOPRAZOLE [Concomitant]
     Active Substance: PANTOPRAZOLE
     Indication: GASTROINTESTINAL DISORDER PROPHYLAXIS
     Route: 048
     Dates: start: 20150116
  7. MAGNESIUM OXIDE. [Concomitant]
     Active Substance: MAGNESIUM OXIDE
     Indication: CONSTIPATION
     Dosage: 250 MILLIGRAM DAILY;
     Route: 048
     Dates: start: 20150205
  8. DESOXYMETHASONE [Concomitant]
     Active Substance: DESOXIMETASONE
     Indication: ECZEMA
     Dosage: 20 GRAM DAILY;
     Route: 062
     Dates: start: 20150226
  9. CARBOPLATIN (BLINDED) [Suspect]
     Active Substance: CARBOPLATIN
     Dosage: AUC 5; DAY 1 OF FOUR 21?DAY CYCLES IN SEGMENT 1
     Route: 042
     Dates: start: 20150122, end: 20150212
  10. CYCLOPHOSPHAMIDE. [Suspect]
     Active Substance: CYCLOPHOSPHAMIDE
     Dosage: DAY 1 OF FOUR 21?DAY CYCLES IN SEGMENT 2 (500 MG/M2)
     Route: 042
     Dates: start: 20150521, end: 20150521
  11. DEXAMETHASONE. [Concomitant]
     Active Substance: DEXAMETHASONE
     Indication: PROPHYLAXIS
  12. POVIDONE [Concomitant]
     Active Substance: POVIDONE
     Indication: HAEMORRHOIDS
     Dosage: 1 DROP
     Route: 054
     Dates: start: 20150225
  13. METOCLOPRAMIDE. [Concomitant]
     Active Substance: METOCLOPRAMIDE
     Indication: NAUSEA
     Dosage: 5 MILLIGRAM DAILY;
     Route: 048
     Dates: start: 20141210, end: 20141223
  14. METOCLOPRAMIDE. [Concomitant]
     Active Substance: METOCLOPRAMIDE
     Dosage: 5 MILLIGRAM DAILY;
     Route: 048
     Dates: start: 20150309
  15. PREGABALIN. [Concomitant]
     Active Substance: PREGABALIN
     Indication: PERIPHERAL SENSORY NEUROPATHY
     Dosage: 150 MILLIGRAM DAILY;
     Route: 048
     Dates: start: 20141230, end: 20150115
  16. PREGABALIN. [Concomitant]
     Active Substance: PREGABALIN
     Dosage: 300 MILLIGRAM DAILY;
     Route: 048
     Dates: start: 20150116
  17. PACLITAXEL. [Suspect]
     Active Substance: PACLITAXEL
     Indication: TRIPLE NEGATIVE BREAST CANCER
     Dosage: DAY 1 OF 12 WEEKLY CYCLES IN SEGMENT 1 (80 MG/M2)
     Route: 042
     Dates: start: 20141210, end: 20141224
  18. DEXAMETHASONE. [Concomitant]
     Active Substance: DEXAMETHASONE
     Indication: HYPERSENSITIVITY
     Dosage: 10 MILLIGRAM DAILY;
     Route: 042
     Dates: start: 20150309
  19. LORAZEPAM. [Concomitant]
     Active Substance: LORAZEPAM
     Indication: HYPERSENSITIVITY
     Dosage: 1 MILLIGRAM DAILY;
     Route: 042
     Dates: start: 20150309
  20. FAMOTIDINE. [Concomitant]
     Active Substance: FAMOTIDINE
     Indication: GASTROINTESTINAL DISORDER PROPHYLAXIS
  21. MUPIROCIN. [Concomitant]
     Active Substance: MUPIROCIN
     Indication: DERMATITIS ACNEIFORM
     Dosage: 10 GRAM DAILY;
     Route: 062
     Dates: start: 20141230
  22. DOXORUBICIN (OPEN LABEL) [Suspect]
     Active Substance: DOXORUBICIN
     Dosage: DAY 1 OF FOUR 21?DAY CYCLES IN SEGMENT 2 (50 MG/M2)
     Route: 042
     Dates: start: 20150521
  23. PACLITAXEL. [Suspect]
     Active Substance: PACLITAXEL
     Dosage: DAY 1 OF 12 WEEKLY CYCLES IN SEGMENT 1 (70 MG/M2)
     Route: 042
     Dates: start: 20141230, end: 20150226
  24. ABT?888 [Suspect]
     Active Substance: VELIPARIB
     Indication: TRIPLE NEGATIVE BREAST CANCER
     Dosage: DAILY THROUGH CHEMOTHERAPY SEGMENT 1 (50 MG,2 IN 1 D)
     Route: 048
     Dates: start: 20141210, end: 20150303
  25. DEXAMETHASONE. [Concomitant]
     Active Substance: DEXAMETHASONE
     Indication: ECZEMA
  26. PRAMOXINE [Concomitant]
     Active Substance: PRAMOXINE
     Indication: HAEMORRHOIDS
     Dosage: 1 DOSAGE FORMS DAILY;
     Route: 054
     Dates: start: 20150205
  27. ZOLPID [Concomitant]
     Indication: INSOMNIA
     Dosage: 10 MILLIGRAM DAILY;
     Route: 048
     Dates: start: 20150212
  28. DOXORUBICIN (OPEN LABEL) [Suspect]
     Active Substance: DOXORUBICIN
     Indication: TRIPLE NEGATIVE BREAST CANCER
     Dosage: DAY 1 OF FOUR 21?DAY CYCLES IN SEGMENT 2 (60 MG/M2)
     Route: 042
     Dates: start: 20150309, end: 20150428

REACTIONS (1)
  - Pneumonia [Recovered/Resolved]

NARRATIVE: CASE EVENT DATE: 20150529
